FAERS Safety Report 8337977 (Version 6)
Quarter: 2013Q4

REPORT INFORMATION
  Report Type: Report from Study
  Country: ES (occurrence: ES)
  Receive Date: 20120116
  Receipt Date: 20131015
  Transmission Date: 20140711
  Serious: Yes (Death, Hospitalization)
  Sender: FDA-Public Use
  Company Number: ES-VIIV HEALTHCARE LIMITED-B0760645A

PATIENT
  Age: 50 Year
  Sex: Male
  Weight: 55 kg

DRUGS (3)
  1. MARAVIROC [Suspect]
     Indication: HIV INFECTION
     Dosage: 150MG TWICE PER DAY
     Route: 048
     Dates: start: 20070926
  2. RALTEGRAVIR [Suspect]
     Indication: HIV INFECTION
     Dosage: 1TAB TWICE PER DAY
     Route: 048
     Dates: start: 20070926
  3. TRUVADA [Suspect]
     Indication: HIV INFECTION
     Dosage: 1TAB PER DAY
     Route: 048
     Dates: start: 20101118

REACTIONS (1)
  - Malignant melanoma [Fatal]
